FAERS Safety Report 16715837 (Version 1)
Quarter: 2019Q3

REPORT INFORMATION
  Report Type: Spontaneous
  Country: CA (occurrence: CA)
  Receive Date: 20190819
  Receipt Date: 20190819
  Transmission Date: 20191005
  Serious: Yes (Death)
  Sender: FDA-Public Use
  Company Number: CA-PFIZER INC-2017241112

PATIENT
  Age: 77 Year
  Sex: Female

DRUGS (8)
  1. HYDROMORPHONE [Concomitant]
     Active Substance: HYDROMORPHONE
     Dosage: 1 MG, EVERY 4 HRS
  2. FASLODEX [Concomitant]
     Active Substance: FULVESTRANT
     Dosage: UNK
  3. VITAMIN D [Concomitant]
     Active Substance: VITAMIN D NOS
     Dosage: UNK UNK, 2X/DAY
  4. DENOSUMAB [Concomitant]
     Active Substance: DENOSUMAB
     Indication: BONE LOSS
     Dosage: UNK UNK, MONTHLY INJECTION FOR BONES
  5. IBRANCE [Suspect]
     Active Substance: PALBOCICLIB
     Dosage: 125 MG, CYCLIC (DAILY FOR 21DAYS AND OFF FOR 7 DAYS)
     Dates: start: 20170621
  6. IBRANCE [Suspect]
     Active Substance: PALBOCICLIB
     Dosage: 75 MG, CYCLIC, 21 DAYS ON, 7 DAYS OFF
     Dates: start: 20170828
  7. SYNTHROID [Concomitant]
     Active Substance: LEVOTHYROXINE SODIUM
     Dosage: 150 MG, DAILY
  8. TYLENOL [Concomitant]
     Active Substance: ACETAMINOPHEN
     Dosage: UNK, AS NEEDED (PRN)

REACTIONS (2)
  - Death [Fatal]
  - Product use in unapproved indication [Unknown]
